FAERS Safety Report 5064001-5 (Version None)
Quarter: 2006Q3

REPORT INFORMATION
  Report Type: 
  Country: None (occurrence: None)
  Receive Date: 20060703
  Receipt Date: 20060306
  Transmission Date: 20061208
  Serious: Yes (Hospitalization)
  Sender: FDA-Public Use
  Company Number: 144861USA

PATIENT
  Age: 24 Month
  Sex: Male
  Weight: 11.7935 kg

DRUGS (2)
  1. AMOXICILLIN/CLAVULANATE [Suspect]
     Indication: EAR PAIN
     Dates: start: 20060302, end: 20060303
  2. AMOXICILLIN/CLAVULANATE [Suspect]
     Indication: NASOPHARYNGITIS
     Dates: start: 20060302, end: 20060303

REACTIONS (3)
  - DIARRHOEA [None]
  - PYREXIA [None]
  - VOMITING [None]
